FAERS Safety Report 17132582 (Version 1)
Quarter: 2019Q4

REPORT INFORMATION
  Report Type: Spontaneous
  Country: US (occurrence: US)
  Receive Date: 20191115
  Receipt Date: 20191115
  Transmission Date: 20200122
  Serious: Yes (Life-Threatening)
  Sender: FDA-Public Use
  Company Number: None

PATIENT
  Age: 64 Year
  Sex: Female
  Weight: 86.18 kg

DRUGS (11)
  1. SIMVASTATIN 40 MG [Concomitant]
     Active Substance: SIMVASTATIN
  2. VICKS VAPORUB [Concomitant]
     Active Substance: CAMPHOR (SYNTHETIC)\EUCALYPTUS OIL\MENTHOL
  3. LEVOTHYROXINE. [Concomitant]
     Active Substance: LEVOTHYROXINE
  4. LORATADINE. [Concomitant]
     Active Substance: LORATADINE
  5. LOSARTAN. [Concomitant]
     Active Substance: LOSARTAN
  6. RIZATRIPTAN. [Concomitant]
     Active Substance: RIZATRIPTAN
  7. BENTYL [Suspect]
     Active Substance: DICYCLOMINE HYDROCHLORIDE
     Indication: RESPIRATORY DISORDER
     Dosage: ?          QUANTITY:32 ;?
     Route: 048
     Dates: start: 20190930, end: 20191001
  8. ATENOLOL 25MG [Concomitant]
     Active Substance: ATENOLOL
  9. NEXIUM [Concomitant]
     Active Substance: ESOMEPRAZOLE MAGNESIUM
  10. VITAMIN B12 [Concomitant]
     Active Substance: CYANOCOBALAMIN
  11. BETAMETHASONE. [Concomitant]
     Active Substance: BETAMETHASONE

REACTIONS (3)
  - Bedridden [None]
  - Gait disturbance [None]
  - Pain in extremity [None]
